FAERS Safety Report 10685024 (Version 1)
Quarter: 2014Q4

REPORT INFORMATION
  Report Type: Spontaneous
  Country: US (occurrence: None)
  Receive Date: 20141230
  Receipt Date: 20141230
  Transmission Date: 20150529
  Serious: No
  Sender: FDA-Public Use
  Company Number: None

PATIENT
  Age: 52 Year
  Sex: Female

DRUGS (1)
  1. CIPROFLOXACIN. [Suspect]
     Active Substance: CIPROFLOXACIN
     Indication: EYE INFECTION
     Dates: start: 20141219, end: 20141219

REACTIONS (7)
  - Dysgeusia [None]
  - Dyspnoea [None]
  - Tremor [None]
  - Palpitations [None]
  - Nausea [None]
  - Heart rate increased [None]
  - Arrhythmia [None]

NARRATIVE: CASE EVENT DATE: 20141219
